FAERS Safety Report 15256023 (Version 3)
Quarter: 2018Q3

REPORT INFORMATION
  Report Type: Spontaneous
  Country: RU (occurrence: RU)
  Receive Date: 20180808
  Receipt Date: 20180910
  Transmission Date: 20181010
  Serious: Yes (Other)
  Sender: FDA-Public Use
  Company Number: PHHY2018RU067946

PATIENT

DRUGS (6)
  1. CAPECITABINE. [Concomitant]
     Active Substance: CAPECITABINE
     Indication: PRODUCT USED FOR UNKNOWN INDICATION
     Route: 065
  2. AFINITOR [Suspect]
     Active Substance: EVEROLIMUS
     Indication: PRODUCT USED FOR UNKNOWN INDICATION
     Dosage: 10 MG, QD (1 TABLET)
     Route: 065
     Dates: end: 20180807
  3. ZOLADEX [Concomitant]
     Active Substance: GOSERELIN ACETATE
     Indication: PRODUCT USED FOR UNKNOWN INDICATION
     Route: 065
  4. FASLODEX [Concomitant]
     Active Substance: FULVESTRANT
     Indication: PRODUCT USED FOR UNKNOWN INDICATION
     Route: 065
  5. AROMASIN [Concomitant]
     Active Substance: EXEMESTANE
     Indication: PRODUCT USED FOR UNKNOWN INDICATION
     Dosage: 1 DF, QD
     Route: 065
     Dates: end: 20180807
  6. ANASTROZOLE. [Concomitant]
     Active Substance: ANASTROZOLE
     Indication: PRODUCT USED FOR UNKNOWN INDICATION
     Route: 065

REACTIONS (7)
  - Body temperature increased [Unknown]
  - Epistaxis [Unknown]
  - Chest pain [Unknown]
  - Cough [Unknown]
  - Drug ineffective [Unknown]
  - Metastases to liver [Unknown]
  - Metastases to lung [Unknown]
